FAERS Safety Report 24574908 (Version 1)
Quarter: 2024Q4

REPORT INFORMATION
  Report Type: Spontaneous
  Country: RS (occurrence: RS)
  Receive Date: 20241104
  Receipt Date: 20241104
  Transmission Date: 20250115
  Serious: Yes (Other)
  Sender: ROCHE
  Company Number: RS-ROCHE-10000121103

PATIENT
  Age: 58 Year
  Sex: Male

DRUGS (1)
  1. TECENTRIQ [Suspect]
     Active Substance: ATEZOLIZUMAB
     Indication: Squamous cell carcinoma
     Dosage: TOTAL CYCLES RECEIVED-2
     Route: 065
     Dates: start: 20240809

REACTIONS (3)
  - Metastases to bone [Unknown]
  - Metastases to heart [Unknown]
  - Hyponatraemia [Unknown]
